FAERS Safety Report 25978418 (Version 2)
Quarter: 2025Q4

REPORT INFORMATION
  Report Type: Spontaneous
  Country: RU (occurrence: RU)
  Receive Date: 20251030
  Receipt Date: 20251208
  Transmission Date: 20260118
  Serious: Yes (Death)
  Sender: ROCHE
  Company Number: RU-ROCHE-10000420494

PATIENT
  Age: 65 Year
  Sex: Female

DRUGS (3)
  1. ZELBORAF [Suspect]
     Active Substance: VEMURAFENIB
     Indication: Metastatic malignant melanoma
     Dosage: STANDARD DOSING REGIMEN WAS USED, DUE TO INSTRUCTION FOR MEDICAL USE?THERAPY START DATE: IN END OF S
     Route: 065
     Dates: start: 202510
  2. COTELLIC [Suspect]
     Active Substance: COBIMETINIB FUMARATE
     Indication: Metastatic malignant melanoma
     Dosage: STANDARD DOSING REGIMEN FOR THE DRUGS WAS USED, DUE TO INSTRUCTION FOR MEDICAL USE?THERAPY START DAT
     Route: 065
     Dates: start: 202510
  3. DEXAMETHASONE [Concomitant]
     Active Substance: DEXAMETHASONE

REACTIONS (1)
  - Thrombosis mesenteric vessel [Fatal]

NARRATIVE: CASE EVENT DATE: 20251001
